FAERS Safety Report 7622154-6 (Version None)
Quarter: 2011Q3

REPORT INFORMATION
  Report Type: 
  Country: None (occurrence: None)
  Receive Date: 20110720
  Receipt Date: 20110509
  Transmission Date: 20111222
  Serious: Yes (Other)
  Sender: FDA-Public Use
  Company Number: US-BAYER-2011-025338

PATIENT
  Age: 72 Year
  Sex: Female

DRUGS (1)
  1. AVELOX [Suspect]
     Dosage: 400 MG, UNK
     Route: 048

REACTIONS (8)
  - CHEST DISCOMFORT [None]
  - PRURITUS [None]
  - MALAISE [None]
  - GENERALISED ERYTHEMA [None]
  - DYSPNOEA [None]
  - ERYTHEMA [None]
  - INFLAMMATION [None]
  - ANAPHYLACTIC REACTION [None]
